FAERS Safety Report 4544904-8 (Version None)
Quarter: 2005Q1

REPORT INFORMATION
  Report Type: 
  Country: None (occurrence: None)
  Receive Date: 20050105
  Receipt Date: 20041125
  Transmission Date: 20050727
  Serious: Yes (Other)
  Sender: FDA-Public Use
  Company Number: AU-NOVOPROD-240733

PATIENT
  Age: 43 Year
  Sex: Male
  Weight: 96 kg

DRUGS (4)
  1. INSULIN DETEMIR [Suspect]
     Indication: DIABETES MELLITUS INSULIN-DEPENDENT
     Dosage: 36 U, QD
     Route: 058
     Dates: start: 20040827
  2. NOVORAPID [Suspect]
     Indication: DIABETES MELLITUS INSULIN-DEPENDENT
     Dosage: 58 IU, QD
     Route: 058
     Dates: start: 20040827
  3. CELEBREX [Concomitant]
     Dosage: 100 MG, QD
     Route: 048
     Dates: start: 20030101
  4. VIAGRA [Concomitant]
     Dosage: UNK G, QD
     Route: 048
     Dates: start: 20030101

REACTIONS (3)
  - DIABETIC RETINOPATHY [None]
  - DISEASE PROGRESSION [None]
  - VITREOUS FLOATERS [None]
